FAERS Safety Report 8785743 (Version 3)
Quarter: 2014Q2

REPORT INFORMATION
  Report Type: Spontaneous
  Country: US (occurrence: US)
  Receive Date: 20120914
  Receipt Date: 20140521
  Transmission Date: 20141212
  Serious: Yes (Hospitalization)
  Sender: FDA-Public Use
  Company Number: US-GLAXOSMITHKLINE-A0860404A

PATIENT
  Sex: Male

DRUGS (1)
  1. AVANDIA [Suspect]
     Indication: TYPE 2 DIABETES MELLITUS
     Route: 048
     Dates: start: 20050211, end: 20080918

REACTIONS (4)
  - Myocardial infarction [Unknown]
  - Myocardial ischaemia [Unknown]
  - Cardiac disorder [Unknown]
  - Coronary artery disease [Unknown]
